FAERS Safety Report 19934408 (Version 1)
Quarter: 2021Q4

REPORT INFORMATION
  Report Type: Spontaneous
  Country: US (occurrence: US)
  Receive Date: 20211008
  Receipt Date: 20211008
  Transmission Date: 20220304
  Serious: No
  Sender: FDA-Public Use
  Company Number: US-VIIV HEALTHCARE LIMITED-69028

PATIENT

DRUGS (5)
  1. TIVICAY PD [Suspect]
     Active Substance: DOLUTEGRAVIR SODIUM
     Indication: Product used for unknown indication
     Dosage: UNK
     Route: 048
  2. TIVICAY PD [Suspect]
     Active Substance: DOLUTEGRAVIR SODIUM
  3. TIVICAY PD [Suspect]
     Active Substance: DOLUTEGRAVIR SODIUM
     Indication: Product used for unknown indication
     Route: 048
  4. ABACAVIR [Concomitant]
     Active Substance: ABACAVIR
     Indication: Product used for unknown indication
     Dosage: UNK
  5. EMTRICITABINE [Concomitant]
     Active Substance: EMTRICITABINE
     Indication: Product used for unknown indication
     Dosage: UNK

REACTIONS (3)
  - Dysgeusia [Unknown]
  - Vomiting [Unknown]
  - Product complaint [Unknown]
